FAERS Safety Report 9538680 (Version 1)
Quarter: 2013Q3

REPORT INFORMATION
  Report Type: Spontaneous
  Country: US (occurrence: US)
  Receive Date: 20130920
  Receipt Date: 20130920
  Transmission Date: 20140515
  Serious: Yes (Other)
  Sender: FDA-Public Use
  Company Number: PHEH2013US019413

PATIENT
  Age: 27 Year
  Sex: Male

DRUGS (1)
  1. TOBI [Suspect]
     Dosage: UNK

REACTIONS (2)
  - Pancreatic disorder [Unknown]
  - Total lung capacity decreased [Unknown]
